FAERS Safety Report 15774451 (Version 1)
Quarter: 2018Q4

REPORT INFORMATION
  Report Type: Spontaneous
  Country: US (occurrence: US)
  Receive Date: 20181229
  Receipt Date: 20181229
  Transmission Date: 20190205
  Serious: Yes (Other)
  Sender: FDA-Public Use
  Company Number: US-AMGEN-USASP2018184920

PATIENT
  Age: 68 Year
  Sex: Female

DRUGS (1)
  1. PROLIA [Suspect]
     Active Substance: DENOSUMAB
     Indication: OSTEOPOROSIS POSTMENOPAUSAL
     Dosage: 1 INJECTION/Q6MO
     Route: 065

REACTIONS (10)
  - Intervertebral disc compression [Unknown]
  - Pain in extremity [Not Recovered/Not Resolved]
  - Foot fracture [Unknown]
  - Malaise [Unknown]
  - Injection site pain [Unknown]
  - Arthralgia [Unknown]
  - Urinary tract infection [Recovering/Resolving]
  - Gait disturbance [Not Recovered/Not Resolved]
  - Bedridden [Unknown]
  - Arthralgia [Unknown]

NARRATIVE: CASE EVENT DATE: 2018
